FAERS Safety Report 19322485 (Version 2)
Quarter: 2021Q3

REPORT INFORMATION
  Report Type: Spontaneous
  Country: CA (occurrence: CA)
  Receive Date: 20210528
  Receipt Date: 20210920
  Transmission Date: 20211014
  Serious: Yes (Hospitalization, Other)
  Sender: FDA-Public Use
  Company Number: CA-TEVA-2021-CA-1914598

PATIENT
  Age: 32 Year
  Sex: Female
  Weight: 70 kg

DRUGS (79)
  1. ABILIFY [Suspect]
     Active Substance: ARIPIPRAZOLE
     Route: 065
  2. ABILIFY [Suspect]
     Active Substance: ARIPIPRAZOLE
     Dosage: 5 MILLIGRAM DAILY;
     Route: 048
  3. ABILIFY [Suspect]
     Active Substance: ARIPIPRAZOLE
     Dosage: 5 MILLIGRAM DAILY;
     Route: 048
  4. ABILIFY MAINTENA [Suspect]
     Active Substance: ARIPIPRAZOLE
     Route: 065
  5. ABILIFY MAINTENA [Suspect]
     Active Substance: ARIPIPRAZOLE
     Route: 065
  6. ABILIFY MAINTENA [Suspect]
     Active Substance: ARIPIPRAZOLE
     Route: 030
  7. WELLBUTRIN XL [Suspect]
     Active Substance: BUPROPION HYDROCHLORIDE
     Indication: PRODUCT USE IN UNAPPROVED INDICATION
     Route: 065
  8. QUETIAPINE. [Suspect]
     Active Substance: QUETIAPINE
     Route: 048
  9. ABILIFY [Suspect]
     Active Substance: ARIPIPRAZOLE
     Indication: BIPOLAR DISORDER
     Dosage: 5 MILLIGRAM DAILY;
     Route: 048
  10. ABILIFY [Suspect]
     Active Substance: ARIPIPRAZOLE
     Route: 065
  11. ABILIFY [Suspect]
     Active Substance: ARIPIPRAZOLE
     Route: 065
  12. ABILIFY [Suspect]
     Active Substance: ARIPIPRAZOLE
     Route: 030
  13. ABILIFY [Suspect]
     Active Substance: ARIPIPRAZOLE
     Dosage: 5 MILLIGRAM DAILY;
     Route: 048
  14. ABILIFY MAINTENA [Suspect]
     Active Substance: ARIPIPRAZOLE
     Indication: SCHIZOPHRENIA
     Route: 030
  15. ABILIFY MAINTENA [Suspect]
     Active Substance: ARIPIPRAZOLE
     Route: 065
  16. ABILIFY MAINTENA [Suspect]
     Active Substance: ARIPIPRAZOLE
     Route: 065
  17. LAMICTAL [Suspect]
     Active Substance: LAMOTRIGINE
     Route: 065
  18. LAMICTAL [Suspect]
     Active Substance: LAMOTRIGINE
     Route: 065
  19. WELLBUTRIN XL [Suspect]
     Active Substance: BUPROPION HYDROCHLORIDE
     Indication: PRODUCT USED FOR UNKNOWN INDICATION
     Route: 065
  20. QUETIAPINE FUMARATE. [Suspect]
     Active Substance: QUETIAPINE FUMARATE
     Route: 048
  21. ABILIFY [Suspect]
     Active Substance: ARIPIPRAZOLE
     Indication: PRODUCT USE IN UNAPPROVED INDICATION
     Dosage: 5 MILLIGRAM DAILY;
     Route: 048
  22. ABILIFY [Suspect]
     Active Substance: ARIPIPRAZOLE
     Dosage: 5 MILLIGRAM DAILY;
     Route: 065
  23. ABILIFY [Suspect]
     Active Substance: ARIPIPRAZOLE
     Dosage: 5 MILLIGRAM DAILY;
     Route: 065
  24. ABILIFY [Suspect]
     Active Substance: ARIPIPRAZOLE
     Route: 030
  25. ABILIFY [Suspect]
     Active Substance: ARIPIPRAZOLE
     Route: 065
  26. ABILIFY [Suspect]
     Active Substance: ARIPIPRAZOLE
     Route: 065
  27. ABILIFY [Suspect]
     Active Substance: ARIPIPRAZOLE
     Route: 065
  28. ABILIFY MAINTENA [Suspect]
     Active Substance: ARIPIPRAZOLE
     Route: 065
  29. ABILIFY MAINTENA [Suspect]
     Active Substance: ARIPIPRAZOLE
     Route: 065
  30. ABILIFY MAINTENA [Suspect]
     Active Substance: ARIPIPRAZOLE
     Route: 030
  31. ABILIFY MAINTENA [Suspect]
     Active Substance: ARIPIPRAZOLE
     Route: 065
  32. WELLBUTRIN XL [Suspect]
     Active Substance: BUPROPION HYDROCHLORIDE
     Route: 065
  33. QUETIAPINE. [Suspect]
     Active Substance: QUETIAPINE
     Indication: PRODUCT USED FOR UNKNOWN INDICATION
     Route: 048
  34. QUETIAPINE. [Suspect]
     Active Substance: QUETIAPINE
     Indication: PRODUCT USE IN UNAPPROVED INDICATION
     Route: 048
  35. QUETIAPINE. [Suspect]
     Active Substance: QUETIAPINE
     Route: 048
  36. QUETIAPINE. [Suspect]
     Active Substance: QUETIAPINE
     Route: 048
  37. QUETIAPINE. [Suspect]
     Active Substance: QUETIAPINE
     Route: 048
  38. ABILIFY [Suspect]
     Active Substance: ARIPIPRAZOLE
     Route: 065
  39. ABILIFY MAINTENA [Suspect]
     Active Substance: ARIPIPRAZOLE
     Indication: PRODUCT USE IN UNAPPROVED INDICATION
     Route: 065
  40. ABILIFY MAINTENA [Suspect]
     Active Substance: ARIPIPRAZOLE
     Route: 065
  41. ABILIFY MAINTENA [Suspect]
     Active Substance: ARIPIPRAZOLE
     Route: 065
  42. LAMICTAL [Suspect]
     Active Substance: LAMOTRIGINE
     Indication: PRODUCT USED FOR UNKNOWN INDICATION
     Route: 065
  43. SERTRALINE HYDROCHLORIDE. [Concomitant]
     Active Substance: SERTRALINE HYDROCHLORIDE
     Indication: PRODUCT USED FOR UNKNOWN INDICATION
     Route: 065
  44. QUETIAPINE FUMARATE. [Suspect]
     Active Substance: QUETIAPINE FUMARATE
     Indication: PRODUCT USE IN UNAPPROVED INDICATION
     Route: 048
  45. QUETIAPINE FUMARATE. [Suspect]
     Active Substance: QUETIAPINE FUMARATE
     Route: 048
  46. QUETIAPINE FUMARATE. [Suspect]
     Active Substance: QUETIAPINE FUMARATE
     Route: 048
  47. ABILIFY [Suspect]
     Active Substance: ARIPIPRAZOLE
     Indication: SCHIZOAFFECTIVE DISORDER
     Route: 065
  48. ABILIFY [Suspect]
     Active Substance: ARIPIPRAZOLE
     Route: 065
  49. ABILIFY [Suspect]
     Active Substance: ARIPIPRAZOLE
     Dosage: 5 MILLIGRAM DAILY;
     Route: 048
  50. ABILIFY [Suspect]
     Active Substance: ARIPIPRAZOLE
     Route: 030
  51. ABILIFY [Suspect]
     Active Substance: ARIPIPRAZOLE
     Route: 030
  52. ABILIFY [Suspect]
     Active Substance: ARIPIPRAZOLE
     Route: 065
  53. ABILIFY [Suspect]
     Active Substance: ARIPIPRAZOLE
     Dosage: 5 MILLIGRAM DAILY;
     Route: 048
  54. ABILIFY MAINTENA [Suspect]
     Active Substance: ARIPIPRAZOLE
     Indication: SCHIZOAFFECTIVE DISORDER DEPRESSIVE TYPE
     Route: 065
  55. ABILIFY MAINTENA [Suspect]
     Active Substance: ARIPIPRAZOLE
     Route: 065
  56. ABILIFY [Suspect]
     Active Substance: ARIPIPRAZOLE
     Dosage: 5 MILLIGRAM DAILY;
     Route: 065
  57. ABILIFY [Suspect]
     Active Substance: ARIPIPRAZOLE
     Route: 065
  58. ABILIFY [Suspect]
     Active Substance: ARIPIPRAZOLE
     Route: 030
  59. ABILIFY MAINTENA [Suspect]
     Active Substance: ARIPIPRAZOLE
     Indication: BIPOLAR DISORDER
     Route: 065
  60. QUETIAPINE FUMARATE. [Suspect]
     Active Substance: QUETIAPINE FUMARATE
     Indication: PRODUCT USED FOR UNKNOWN INDICATION
     Route: 048
  61. ABILIFY [Suspect]
     Active Substance: ARIPIPRAZOLE
     Indication: SCHIZOPHRENIA
     Dosage: 5 MILLIGRAM DAILY;
     Route: 048
  62. ABILIFY [Suspect]
     Active Substance: ARIPIPRAZOLE
     Route: 065
  63. ABILIFY [Suspect]
     Active Substance: ARIPIPRAZOLE
     Route: 030
  64. ABILIFY [Suspect]
     Active Substance: ARIPIPRAZOLE
     Route: 065
  65. ABILIFY [Suspect]
     Active Substance: ARIPIPRAZOLE
     Dosage: 5 MILLIGRAM DAILY;
     Route: 048
  66. ABILIFY MAINTENA [Suspect]
     Active Substance: ARIPIPRAZOLE
     Indication: DEPRESSION
     Route: 065
  67. ABILIFY MAINTENA [Suspect]
     Active Substance: ARIPIPRAZOLE
     Route: 030
  68. ABILIFY MAINTENA [Suspect]
     Active Substance: ARIPIPRAZOLE
     Route: 030
  69. ABILIFY MAINTENA [Suspect]
     Active Substance: ARIPIPRAZOLE
     Route: 065
  70. ABILIFY MAINTENA [Suspect]
     Active Substance: ARIPIPRAZOLE
     Route: 065
  71. ABILIFY MAINTENA [Suspect]
     Active Substance: ARIPIPRAZOLE
     Route: 065
  72. SERTRALINE HYDROCHLORIDE. [Concomitant]
     Active Substance: SERTRALINE HYDROCHLORIDE
     Route: 065
  73. QUETIAPINE FUMARATE. [Suspect]
     Active Substance: QUETIAPINE FUMARATE
     Route: 048
  74. ABILIFY [Suspect]
     Active Substance: ARIPIPRAZOLE
     Indication: DEPRESSION
     Route: 065
  75. ABILIFY [Suspect]
     Active Substance: ARIPIPRAZOLE
     Route: 065
  76. ABILIFY MAINTENA [Suspect]
     Active Substance: ARIPIPRAZOLE
     Route: 065
  77. ABILIFY MAINTENA [Suspect]
     Active Substance: ARIPIPRAZOLE
     Route: 065
  78. ABILIFY MAINTENA [Suspect]
     Active Substance: ARIPIPRAZOLE
     Route: 065
  79. LAMICTAL [Suspect]
     Active Substance: LAMOTRIGINE
     Indication: PRODUCT USE IN UNAPPROVED INDICATION
     Route: 065

REACTIONS (8)
  - Nausea [Not Recovered/Not Resolved]
  - Vertigo [Not Recovered/Not Resolved]
  - Dizziness [Not Recovered/Not Resolved]
  - Prescribed underdose [Not Recovered/Not Resolved]
  - Product use in unapproved indication [Not Recovered/Not Resolved]
  - Anxiety [Not Recovered/Not Resolved]
  - Headache [Not Recovered/Not Resolved]
  - Infarction [Not Recovered/Not Resolved]
